FAERS Safety Report 4756505-7 (Version None)
Quarter: 2005Q3

REPORT INFORMATION
  Report Type: 
  Country: None (occurrence: None)
  Receive Date: 20050830
  Receipt Date: 20050718
  Transmission Date: 20060218
  Serious: No
  Sender: FDA-Public Use
  Company Number: US-GLAXOSMITHKLINE-A0566690B

PATIENT

DRUGS (2)
  1. WELLBUTRIN [Suspect]
     Indication: BREAST FEEDING
  2. ZOLOFT [Concomitant]

REACTIONS (1)
  - DRUG EXPOSURE VIA BREAST MILK [None]
